FAERS Safety Report 10954286 (Version 1)
Quarter: 2015Q1

REPORT INFORMATION
  Report Type: Spontaneous
  Country: ES (occurrence: ES)
  Receive Date: 20150325
  Receipt Date: 20150325
  Transmission Date: 20150721
  Serious: Yes (Disabling)
  Sender: FDA-Public Use
  Company Number: ES-ABBVIE-15P-144-1363295-00

PATIENT
  Age: 44 Year
  Sex: Female

DRUGS (1)
  1. KALETRA [Suspect]
     Active Substance: LOPINAVIR\RITONAVIR
     Indication: HIV INFECTION
     Route: 048
     Dates: start: 2004, end: 20141126

REACTIONS (1)
  - Retinal pigment epitheliopathy [Unknown]

NARRATIVE: CASE EVENT DATE: 20140514
